FAERS Safety Report 5975243-6 (Version None)
Quarter: 2008Q4

REPORT INFORMATION
  Report Type: 
  Country: None (occurrence: None)
  Receive Date: 20081202
  Receipt Date: 20081120
  Transmission Date: 20090506
  Serious: Yes (Life-Threatening, Hospitalization)
  Sender: FDA-Public Use
  Company Number: CA-ROCHE-595912

PATIENT
  Sex: Male
  Weight: 98 kg

DRUGS (4)
  1. PEG-INTERFERON ALFA 2A (RO 25-8310) [Suspect]
     Dosage: DRUG TEMPORAILY INTERRUPTED.
     Route: 058
     Dates: start: 20080626, end: 20081029
  2. PEG-INTERFERON ALFA 2A (RO 25-8310) [Suspect]
     Route: 058
     Dates: end: 20081116
  3. RIBAVIRIN [Suspect]
     Dosage: DOSE REPORTED AS 200 MCG, DRUG WAS TEMPORARILY INTERRUPTED. FORM REPORTED AS PILLS.
     Route: 048
     Dates: start: 20080626, end: 20081029
  4. RIBAVIRIN [Suspect]
     Route: 048
     Dates: start: 20081031, end: 20081116

REACTIONS (6)
  - DEHYDRATION [None]
  - FALL [None]
  - HEPATIC ENCEPHALOPATHY [None]
  - INTESTINAL ISCHAEMIA [None]
  - INTUSSUSCEPTION [None]
  - SEPSIS [None]
